FAERS Safety Report 6251205-9 (Version None)
Quarter: 2009Q2

REPORT INFORMATION
  Report Type: 
  Country: None (occurrence: None)
  Receive Date: 20090630
  Receipt Date: 20090615
  Transmission Date: 20091009
  Serious: Yes (Other)
  Sender: FDA-Public Use
  Company Number: US-GENENTECH-285661

PATIENT
  Age: 28 Year
  Sex: Female

DRUGS (8)
  1. RITUXIMAB [Suspect]
     Indication: THERAPEUTIC PROCEDURE
     Dosage: UNK
  2. MYCOPHENOLATE MOFETIL [Suspect]
     Indication: PROPHYLAXIS AGAINST TRANSPLANT REJECTION
     Dosage: 2 G, QD
     Route: 065
  3. MYCOPHENOLATE MOFETIL [Suspect]
     Dosage: 5 MG, QD
  4. MYCOPHENOLATE MOFETIL [Suspect]
     Dosage: 3 G, QD
  5. RATG [Suspect]
     Indication: PROPHYLAXIS AGAINST TRANSPLANT REJECTION
     Dosage: 1.5 MG/KG, X4
     Route: 065
  6. TACROLIMUS [Suspect]
     Indication: PROPHYLAXIS AGAINST TRANSPLANT REJECTION
     Dosage: 10 NG/ML, UNK
     Route: 065
  7. PREDNISONE TAB [Suspect]
     Indication: PROPHYLAXIS AGAINST TRANSPLANT REJECTION
     Route: 065
  8. BORTEZOMIB [Suspect]
     Indication: PROPHYLAXIS AGAINST TRANSPLANT REJECTION
     Route: 065

REACTIONS (5)
  - ATROPHY [None]
  - GLOMERULONEPHRITIS ACUTE [None]
  - GLOMERULONEPHROPATHY [None]
  - INJURY [None]
  - TRANSPLANT REJECTION [None]
